FAERS Safety Report 4898668-9 (Version None)
Quarter: 2006Q1

REPORT INFORMATION
  Report Type: 
  Country: None (occurrence: None)
  Receive Date: 20060202
  Receipt Date: 19990804
  Transmission Date: 20060701
  Serious: Yes (Death)
  Sender: FDA-Public Use
  Company Number: US-BOEHRINGER INGELHEIM PHARMACEUTICALS, INC.-1999-BP-00960

PATIENT
  Age: 38 Year
  Sex: Male

DRUGS (12)
  1. VIRAMUNE [Suspect]
     Indication: ACQUIRED IMMUNODEFICIENCY SYNDROME
     Route: 048
     Dates: start: 19990223
  2. THIAMINE [Concomitant]
  3. FOLATE [Concomitant]
  4. MULTIVITAMIN [Concomitant]
  5. NELFINAVIR [Concomitant]
     Route: 048
     Dates: start: 19990223
  6. EPIVIR [Concomitant]
  7. STAVUDINE [Concomitant]
  8. FLUCONAZOLE [Concomitant]
  9. LEVOFLOXACILLIN [Concomitant]
  10. BACTRIM [Concomitant]
  11. CLARITHROMYCIN [Concomitant]
  12. ETHAMBUTOL HCL [Concomitant]

REACTIONS (1)
  - DEATH [None]
